FAERS Safety Report 16455336 (Version 1)
Quarter: 2019Q2

REPORT INFORMATION
  Report Type: Spontaneous
  Country: US (occurrence: US)
  Receive Date: 20190619
  Receipt Date: 20190619
  Transmission Date: 20190711
  Serious: No
  Sender: FDA-Public Use
  Company Number: US-ROCHE-2140281

PATIENT
  Age: 63 Year
  Sex: Male

DRUGS (1)
  1. ACTEMRA [Suspect]
     Active Substance: TOCILIZUMAB
     Indication: RHEUMATOID ARTHRITIS
     Dosage: INJ 162MG/0.9 ML
     Route: 058
     Dates: start: 20180101, end: 20180612

REACTIONS (1)
  - Aphthous ulcer [Unknown]

NARRATIVE: CASE EVENT DATE: 20180612
